FAERS Safety Report 8107067 (Version 4)
Quarter: 2013Q4

REPORT INFORMATION
  Report Type: Spontaneous
  Country: US (occurrence: US)
  Receive Date: 20110825
  Receipt Date: 20131125
  Transmission Date: 20140711
  Serious: Yes (Hospitalization, Other)
  Sender: FDA-Public Use
  Company Number: US-BAYER-2011-075002

PATIENT
  Age: 32 Year
  Sex: Female
  Weight: 132 kg

DRUGS (12)
  1. YAZ [Suspect]
     Indication: PREMENSTRUAL SYNDROME
     Dosage: UNK
     Dates: start: 2007, end: 2007
  2. YAZ [Suspect]
     Indication: PREMENSTRUAL DYSPHORIC DISORDER
  3. IBUPROFEN [Concomitant]
     Dosage: UNK
     Dates: start: 1999
  4. NAPROXEN SODIUM W/PSEUDOEPHEDRINE HCL [Concomitant]
     Dosage: UNK
     Dates: start: 1999
  5. LEVOXYL [Concomitant]
     Indication: THYROID DISORDER
     Dosage: 300 ?G, UNK
     Route: 048
     Dates: start: 1999
  6. LEVOXYL [Concomitant]
     Indication: HYPOTHYROIDISM
  7. ZOMIG [Concomitant]
     Indication: MIGRAINE
     Dosage: UNK
     Dates: start: 2004
  8. PRILOSEC [Concomitant]
     Route: 048
  9. ASPIRIN [Concomitant]
     Dosage: 81 MG, DAILY
     Route: 048
     Dates: start: 200801
  10. FLEXERIL [Concomitant]
     Dosage: 10 MG, TID
     Route: 048
     Dates: start: 200801
  11. ATENOLOL [Concomitant]
     Indication: HYPERTENSION
     Dosage: 50 MG, UNK
     Route: 048
     Dates: start: 200801
  12. PROPOXYPHENE NAPSYLATE W/ACETAMINOPHENE [Concomitant]
     Dosage: 100-650 TAB
     Dates: start: 20080123

REACTIONS (5)
  - Cholecystitis chronic [None]
  - Gallbladder injury [None]
  - Pain [None]
  - Dehydration [None]
  - Injury [None]
